FAERS Safety Report 15868046 (Version 1)
Quarter: 2019Q1

REPORT INFORMATION
  Report Type: Spontaneous
  Country: US (occurrence: US)
  Receive Date: 20190103
  Receipt Date: 20190103
  Transmission Date: 20190417
  Serious: No
  Sender: FDA-Public Use
  Company Number: None

PATIENT
  Age: 25 Year
  Sex: Male

DRUGS (1)
  1. SIMPONI [Suspect]
     Active Substance: GOLIMUMAB
     Indication: COLITIS
     Dates: start: 20181025, end: 20181228

REACTIONS (2)
  - Drug effect incomplete [None]
  - Drug ineffective [None]

NARRATIVE: CASE EVENT DATE: 20181228
